FAERS Safety Report 17644681 (Version 2)
Quarter: 2020Q2

REPORT INFORMATION
  Report Type: Report from Study
  Country: FR (occurrence: FR)
  Receive Date: 20200408
  Receipt Date: 20200508
  Transmission Date: 20200713
  Serious: Yes (Other)
  Sender: FDA-Public Use
  Company Number: FR-ROCHE-2574595

PATIENT
  Age: 80 Year
  Sex: Male
  Weight: 87 kg

DRUGS (2)
  1. RITUXIMAB. [Concomitant]
     Active Substance: RITUXIMAB
     Indication: MANTLE CELL LYMPHOMA
     Route: 042
     Dates: start: 20180407
  2. RITUXIMAB. [Suspect]
     Active Substance: RITUXIMAB
     Indication: MANTLE CELL LYMPHOMA
     Dosage: LAST DOSE ON 06.FEB.2020
     Route: 058
     Dates: start: 20181107

REACTIONS (1)
  - SARS-CoV-2 test negative [Recovered/Resolved]

NARRATIVE: CASE EVENT DATE: 20200325
